FAERS Safety Report 4657422-3 (Version None)
Quarter: 2005Q2

REPORT INFORMATION
  Report Type: 
  Country: None (occurrence: None)
  Receive Date: 20050510
  Receipt Date: 20050426
  Transmission Date: 20051028
  Serious: Yes (Hospitalization, Other)
  Sender: FDA-Public Use
  Company Number: GB-JNJFOC-20050402743

PATIENT
  Sex: Female
  Weight: 53 kg

DRUGS (11)
  1. REMICADE [Suspect]
     Indication: RHEUMATOID ARTHRITIS
     Route: 042
  2. METHOTREXATE [Concomitant]
     Route: 065
  3. PREDNISOLONE [Concomitant]
     Route: 065
  4. HYDROXOCOBALAMIN [Concomitant]
  5. ETORICOXIB [Concomitant]
  6. FERROUS SULFATE TAB [Concomitant]
  7. FOLIC ACID [Concomitant]
  8. VITAMIN C [Concomitant]
  9. CO-DYDRAMOL [Concomitant]
  10. CO-DYDRAMOL [Concomitant]
  11. METOCLOPRAMIDE [Concomitant]

REACTIONS (2)
  - ABDOMINAL SEPSIS [None]
  - CROHN'S DISEASE [None]
